FAERS Safety Report 9705618 (Version 2)
Quarter: 2015Q3

REPORT INFORMATION
  Report Type: Spontaneous
  Country: US (occurrence: US)
  Receive Date: 20131122
  Receipt Date: 20150803
  Transmission Date: 20151125
  Serious: No
  Sender: FDA-Public Use
  Company Number: US-GILEAD-2008-0017342

PATIENT
  Age: 20 Year
  Sex: Female
  Weight: 86.64 kg

DRUGS (5)
  1. ASA LOW DOSE [Concomitant]
     Route: 048
  2. LETAIRIS [Suspect]
     Active Substance: AMBRISENTAN
     Indication: PULMONARY ARTERIAL HYPERTENSION
     Route: 048
     Dates: start: 20070924
  3. LASIX [Concomitant]
     Active Substance: FUROSEMIDE
     Route: 048
  4. NEXIUM [Concomitant]
     Active Substance: ESOMEPRAZOLE MAGNESIUM
     Route: 048
  5. MULTI-VIT [Concomitant]
     Active Substance: VITAMINS
     Route: 048

REACTIONS (1)
  - Dyspepsia [None]

NARRATIVE: CASE EVENT DATE: 20071001
